FAERS Safety Report 9688100 (Version 2)
Quarter: 2013Q4

REPORT INFORMATION
  Report Type: Spontaneous
  Country: DE (occurrence: None)
  Receive Date: 20131112
  Receipt Date: 20131127
  Transmission Date: 20140711
  Serious: Yes (Death)
  Sender: FDA-Public Use
  Company Number: 1310-1395

PATIENT
  Age: 84 Year
  Sex: Male

DRUGS (3)
  1. EYLEA (AFLIBERCEPT) (SOLUTION FOR INJECTION) (AFLIBERCEPT) [Suspect]
     Indication: AGE-RELATED MACULAR DEGENERATION
     Route: 031
     Dates: start: 20130401, end: 20130401
  2. XYLOCAINE (LIDOCAINE) [Concomitant]
  3. ADONA/CARBAZOCHROME SODIUM SULFONATE) [Concomitant]

REACTIONS (1)
  - Aortic aneurysm rupture [None]
